FAERS Safety Report 8611957-7 (Version None)
Quarter: 2012Q3

REPORT INFORMATION
  Report Type: 
  Country: None (occurrence: None)
  Receive Date: 20120822
  Receipt Date: 20120816
  Transmission Date: 20120928
  Serious: Yes (Other)
  Sender: FDA-Public Use
  Company Number: CA-UCBSA-063827

PATIENT
  Age: 66 Year
  Sex: Female
  Weight: 84 kg

DRUGS (8)
  1. SYNTHROID [Concomitant]
     Indication: HYPOTHYROIDISM
     Route: 048
  2. PERCOCETTE [Concomitant]
     Indication: PAIN
     Dosage: 2 TABS
     Route: 048
  3. PROZAC [Concomitant]
     Indication: ANTIDEPRESSANT THERAPY
     Route: 048
  4. PREDNISONE TAB [Concomitant]
  5. GABAPENTIN [Concomitant]
     Indication: PAIN
     Route: 048
  6. OXYCODONE HCL [Concomitant]
     Indication: PAIN
     Route: 048
  7. TEMAZEPAM [Concomitant]
     Dosage: BEDTIME DAILY
  8. CIMZIA [Suspect]
     Indication: RHEUMATOID ARTHRITIS
     Dosage: EVERY 2 WEEKS X3
     Route: 058
     Dates: start: 20120803, end: 20120803

REACTIONS (1)
  - POST PROCEDURAL INFECTION [None]
